FAERS Safety Report 16690962 (Version 1)
Quarter: 2019Q3

REPORT INFORMATION
  Report Type: Other
  Country: DK (occurrence: DK)
  Receive Date: 20190812
  Receipt Date: 20190812
  Transmission Date: 20191004
  Serious: Yes (Hospitalization)
  Sender: FDA-Public Use
  Company Number: DK-CELLTRION INC.-2019DK023495

PATIENT

DRUGS (2)
  1. RITEMVIA [Suspect]
     Active Substance: RITUXIMAB
     Indication: CHRONIC LEUKAEMIA
     Dosage: UNK
     Route: 065
     Dates: start: 20190709, end: 20190716
  2. RITEMVIA [Suspect]
     Active Substance: RITUXIMAB
     Dosage: UNK
     Dates: start: 20190709, end: 20190716

REACTIONS (6)
  - Infusion related reaction [Recovered/Resolved]
  - Peripheral coldness [Recovering/Resolving]
  - Body temperature increased [Recovering/Resolving]
  - Chills [Recovering/Resolving]
  - Back pain [Recovered/Resolved]
  - Product use in unapproved indication [Unknown]

NARRATIVE: CASE EVENT DATE: 20190709
